FAERS Safety Report 10200248 (Version 1)
Quarter: 2014Q2

REPORT INFORMATION
  Report Type: Spontaneous
  Country: US (occurrence: US)
  Receive Date: 20140527
  Receipt Date: 20140527
  Transmission Date: 20141212
  Serious: No
  Sender: FDA-Public Use
  Company Number: US-SA-2013SA107597

PATIENT
  Sex: 0

DRUGS (2)
  1. CAMPATH [Suspect]
     Indication: CHRONIC LYMPHOCYTIC LEUKAEMIA
     Route: 058
  2. CAMPATH [Suspect]
     Indication: CHRONIC LYMPHOCYTIC LEUKAEMIA
     Route: 058

REACTIONS (5)
  - Injection site reaction [Unknown]
  - Pain [Unknown]
  - Oedema [Unknown]
  - Erythema [Unknown]
  - Wrong technique in drug usage process [Unknown]
